FAERS Safety Report 20251875 (Version 1)
Quarter: 2021Q4

REPORT INFORMATION
  Report Type: Report from Study
  Country: US (occurrence: US)
  Receive Date: 20211229
  Receipt Date: 20211229
  Transmission Date: 20220303
  Serious: No
  Sender: FDA-Public Use
  Company Number: US-CLOVIS ONCOLOGY-CLO-2021-001188

PATIENT
  Age: 60 Year
  Sex: Female

DRUGS (3)
  1. RUBRACA [Suspect]
     Active Substance: RUCAPARIB CAMSYLATE
     Indication: Uterine cancer
     Dosage: 250 MILLIGRAM, QD
     Dates: end: 2021
  2. RUBRACA [Suspect]
     Active Substance: RUCAPARIB CAMSYLATE
     Dosage: 500 MILLIGRAM, BID
     Route: 048
     Dates: start: 20210801, end: 202108
  3. LYNPARZA [Concomitant]
     Active Substance: OLAPARIB
     Indication: Product used for unknown indication
     Dosage: 300 MILLIGRAM, BID
     Route: 048

REACTIONS (7)
  - Adverse event [Unknown]
  - Illness [Unknown]
  - Fatigue [Unknown]
  - Asthenia [Unknown]
  - Hepatic enzyme increased [Unknown]
  - Off label use [Unknown]
  - Product dose omission issue [Unknown]

NARRATIVE: CASE EVENT DATE: 20210801
